FAERS Safety Report 6530089-5 (Version None)
Quarter: 2009Q4

REPORT INFORMATION
  Report Type: 
  Country: None (occurrence: None)
  Receive Date: 20091231
  Receipt Date: 20091218
  Transmission Date: 20100525
  Serious: Yes (Hospitalization)
  Sender: FDA-Public Use
  Company Number: 2009AL007955

PATIENT
  Age: 3 Year
  Sex: Male

DRUGS (1)
  1. PHENOBARBITAL TAB [Suspect]
     Indication: EPILEPSY
     Dosage: 12 ML;BID;PO
     Route: 048

REACTIONS (2)
  - CONVULSION [None]
  - DRUG LEVEL INCREASED [None]
